FAERS Safety Report 21650382 (Version 1)
Quarter: 2022Q4

REPORT INFORMATION
  Report Type: Spontaneous
  Country: US (occurrence: None)
  Receive Date: 20221124
  Receipt Date: 20221124
  Transmission Date: 20230113
  Serious: Yes (Life-Threatening, Disabling, Other)
  Sender: FDA-Public Use
  Company Number: None

PATIENT
  Sex: 0

DRUGS (9)
  1. RISPERDAL [Suspect]
     Active Substance: RISPERIDONE
  2. DEPAKOTE [Suspect]
     Active Substance: DIVALPROEX SODIUM
  3. COGENTIN [Suspect]
     Active Substance: BENZTROPINE MESYLATE
  4. ARTANE [Suspect]
     Active Substance: TRIHEXYPHENIDYL HYDROCHLORIDE
  5. ABILIFY [Suspect]
     Active Substance: ARIPIPRAZOLE
  6. SEROQUEL [Suspect]
     Active Substance: QUETIAPINE FUMARATE
  7. ZYPREXA [Suspect]
     Active Substance: OLANZAPINE
  8. HALDOL [Suspect]
     Active Substance: HALOPERIDOL
  9. FLUPHENAZINE [Suspect]
     Active Substance: FLUPHENAZINE

REACTIONS (7)
  - Movement disorder [None]
  - General physical health deterioration [None]
  - Eye disorder [None]
  - Muscle disorder [None]
  - Multi-organ disorder [None]
  - General physical condition abnormal [None]
  - Hallucination, auditory [None]

NARRATIVE: CASE EVENT DATE: 20070101
